FAERS Safety Report 8269724-2 (Version None)
Quarter: 2012Q2

REPORT INFORMATION
  Report Type: 
  Country: None (occurrence: None)
  Receive Date: 20120405
  Receipt Date: 20120327
  Transmission Date: 20120825
  Serious: Yes (Hospitalization, Other)
  Sender: FDA-Public Use
  Company Number: 2012-029719

PATIENT
  Age: 88 Year
  Sex: Female
  Weight: 127 kg

DRUGS (6)
  1. LISINOPRIL [Concomitant]
  2. VITAMIN B12 [Concomitant]
  3. NAPROXEN SODIUM [Suspect]
     Indication: PAIN
     Dosage: 220 MG, BID, ORAL
     Route: 048
  4. NAPROXEN SODIUM [Suspect]
     Indication: UPPER LIMB FRACTURE
     Dosage: 220 MG, BID, ORAL
     Route: 048
  5. NAPROXEN SODIUM [Suspect]
     Indication: ARTHRITIS
     Dosage: 220 MG, BID, ORAL
     Route: 048
  6. CHLORTHALIDONE [Concomitant]

REACTIONS (5)
  - DUODENAL ULCER HAEMORRHAGE [None]
  - ASTHENIA [None]
  - ATRIAL FIBRILLATION [None]
  - IRON DEFICIENCY ANAEMIA [None]
  - GASTRIC ULCER HAEMORRHAGE [None]
